FAERS Safety Report 19064411 (Version 2)
Quarter: 2021Q2

REPORT INFORMATION
  Report Type: Spontaneous
  Country: US (occurrence: US)
  Receive Date: 20210326
  Receipt Date: 20210409
  Transmission Date: 20210717
  Serious: No
  Sender: FDA-Public Use
  Company Number: US-HORIZON THERAPEUTICS-HZN-2021-001267

PATIENT

DRUGS (3)
  1. TEPROTUMUMAB?TRBW [Suspect]
     Active Substance: TEPROTUMUMAB-TRBW
     Indication: ENDOCRINE OPHTHALMOPATHY
     Dosage: UNK (3 INFUSION TAKEN)
  2. METHYLPREDNISOLONE. [Concomitant]
     Active Substance: METHYLPREDNISOLONE
     Indication: EXOPHTHALMOS
  3. METHYLPREDNISOLONE. [Concomitant]
     Active Substance: METHYLPREDNISOLONE
     Indication: STRABISMUS
     Route: 042

REACTIONS (9)
  - Fatigue [Unknown]
  - Nausea [Unknown]
  - Hypoacusis [Unknown]
  - Dyspnoea [Unknown]
  - Weight decreased [Unknown]
  - Dysgeusia [Unknown]
  - Impaired quality of life [Unknown]
  - Hyperglycaemia [Unknown]
  - Alopecia [Unknown]
